FAERS Safety Report 16048304 (Version 1)
Quarter: 2019Q1

REPORT INFORMATION
  Report Type: Spontaneous
  Country: ES (occurrence: ES)
  Receive Date: 20190307
  Receipt Date: 20190307
  Transmission Date: 20190418
  Serious: Yes (Hospitalization, Other)
  Sender: FDA-Public Use
  Company Number: ES-SAMSUNG BIOEPIS-SB-2019-04617

PATIENT
  Age: 49 Year
  Sex: Female

DRUGS (2)
  1. INFLIXIMAB [Suspect]
     Active Substance: INFLIXIMAB
     Indication: COLITIS ULCERATIVE
     Dosage: UNKNOWN DOSAGE FORM: LYOPHILIZED POWDER
     Route: 042
  2. INFLIXIMAB [Suspect]
     Active Substance: INFLIXIMAB
     Indication: COLITIS ULCERATIVE
     Dosage: UNKNOWN DOSAGE FORM: LYOPHILIZED POWDER
     Route: 042

REACTIONS (15)
  - Inappropriate schedule of product administration [Unknown]
  - Blood fibrinogen abnormal [Recovered/Resolved]
  - Mitral valve repair [Unknown]
  - Renal colic [Unknown]
  - Weight increased [Unknown]
  - Anaemia [Recovered/Resolved]
  - Infusion related reaction [Not Recovered/Not Resolved]
  - Off label use [Unknown]
  - Extrasystoles [Unknown]
  - Arthralgia [Unknown]
  - Paraesthesia [Not Recovered/Not Resolved]
  - Eye disorder [Unknown]
  - Colitis ulcerative [Recovered/Resolved]
  - Uterine prolapse [Unknown]
  - Psoriasis [Recovered/Resolved]
